FAERS Safety Report 20127286 (Version 1)
Quarter: 2021Q4

REPORT INFORMATION
  Report Type: Spontaneous
  Country: US (occurrence: US)
  Receive Date: 20211129
  Receipt Date: 20211129
  Transmission Date: 20220303
  Serious: Yes (Hospitalization)
  Sender: FDA-Public Use
  Company Number: US-ELI_LILLY_AND_COMPANY-US202111008349

PATIENT
  Age: 13 Year
  Sex: Female

DRUGS (5)
  1. HUMATROPE [Suspect]
     Active Substance: SOMATROPIN
     Indication: Short stature
     Dosage: 2.01 MG, UNKNOWN
     Route: 058
     Dates: start: 2016
  2. HUMATROPE [Suspect]
     Active Substance: SOMATROPIN
     Indication: Short stature
     Dosage: 2.01 MG, UNKNOWN
     Route: 058
     Dates: start: 2016
  3. HUMATROPE [Suspect]
     Active Substance: SOMATROPIN
     Dosage: 2.01 MG, UNKNOWN
     Route: 058
  4. HUMATROPE [Suspect]
     Active Substance: SOMATROPIN
     Dosage: 2.01 MG, UNKNOWN
     Route: 058
  5. ADDERALL [Suspect]
     Active Substance: AMPHETAMINE ASPARTATE\AMPHETAMINE SULFATE\DEXTROAMPHETAMINE SACCHARATE\DEXTROAMPHETAMINE SULFATE
     Indication: Attention deficit hyperactivity disorder
     Dosage: UNK UNK, UNKNOWN
     Route: 065

REACTIONS (2)
  - Toxicity to various agents [Recovering/Resolving]
  - Product dose omission issue [Unknown]

NARRATIVE: CASE EVENT DATE: 20211110
